FAERS Safety Report 9421996 (Version 1)
Quarter: 2013Q3

REPORT INFORMATION
  Report Type: Spontaneous
  Country: US (occurrence: None)
  Receive Date: 20130725
  Receipt Date: 20130725
  Transmission Date: 20140515
  Serious: No
  Sender: FDA-Public Use
  Company Number: None

PATIENT
  Age: 54 Year
  Sex: Male

DRUGS (1)
  1. METOPROLOL [Suspect]
     Dosage: ER 200 MG, 60, TWICE DAILY, MOUTH.
     Route: 048
     Dates: start: 20130718, end: 20130720

REACTIONS (2)
  - Feeling abnormal [None]
  - Product colour issue [None]
